FAERS Safety Report 18800135 (Version 3)
Quarter: 2024Q3

REPORT INFORMATION
  Report Type: Spontaneous
  Country: GB (occurrence: GB)
  Receive Date: 20210128
  Receipt Date: 20240716
  Transmission Date: 20241017
  Serious: Yes (Other)
  Sender: PFIZER
  Company Number: GB-ROCHE-2729221

PATIENT
  Age: 72 Year
  Sex: Female
  Weight: 59.5 kg

DRUGS (91)
  1. RITUXIMAB [Suspect]
     Active Substance: RITUXIMAB
     Indication: Diffuse large B-cell lymphoma
     Dosage: 375 MG/M2 (600 MG/M2), EVERY 3 WEEKS
     Route: 041
     Dates: start: 20201124, end: 20201124
  2. RITUXIMAB [Suspect]
     Active Substance: RITUXIMAB
     Dosage: 375 MG/M2 (600 MG/M2), EVERY 3 WEEKS
     Route: 041
     Dates: start: 20201124, end: 20201124
  3. RITUXIMAB [Suspect]
     Active Substance: RITUXIMAB
     Dosage: 375 MG/M2 (600 MG/M2), EVERY 3 WEEKS
     Route: 041
     Dates: start: 20201124, end: 20201124
  4. RITUXIMAB [Suspect]
     Active Substance: RITUXIMAB
     Dosage: 375 MG/M2 (600 MG/M2), EVERY 3 WEEKS
     Route: 041
     Dates: start: 20201124, end: 20201124
  5. RITUXIMAB [Suspect]
     Active Substance: RITUXIMAB
     Dosage: 375 MG/M2 (600 MG/M2), EVERY 3 WEEKS
     Route: 041
     Dates: start: 20201124, end: 20201124
  6. RITUXIMAB [Suspect]
     Active Substance: RITUXIMAB
     Dosage: 375 MG/M2 (600 MG/M2), EVERY 3 WEEKS
     Route: 041
     Dates: start: 20201215, end: 20201215
  7. RITUXIMAB [Suspect]
     Active Substance: RITUXIMAB
     Dosage: 375 MG/M2 (600 MG/M2), EVERY 3 WEEKS
     Route: 041
     Dates: start: 20201124, end: 20201124
  8. RITUXIMAB [Suspect]
     Active Substance: RITUXIMAB
     Dosage: 3 ML
     Route: 042
     Dates: start: 20201221, end: 20201221
  9. RITUXIMAB [Suspect]
     Active Substance: RITUXIMAB
     Dosage: 600 MG/M2
     Route: 042
     Dates: start: 20210105, end: 20210105
  10. RITUXIMAB [Suspect]
     Active Substance: RITUXIMAB
     Dosage: 600 MG
     Route: 042
     Dates: start: 20210126
  11. RITUXIMAB [Suspect]
     Active Substance: RITUXIMAB
     Dosage: 500 MG/M2
     Route: 042
     Dates: start: 20210216, end: 20210216
  12. RITUXIMAB [Suspect]
     Active Substance: RITUXIMAB
     Dosage: 600 MG/M2
     Route: 042
     Dates: start: 20210309, end: 20210309
  13. RITUXIMAB [Suspect]
     Active Substance: RITUXIMAB
     Dosage: 600 MG 3 WEEKS
     Route: 042
     Dates: start: 20210105, end: 20210216
  14. VINCRISTINE SULFATE [Suspect]
     Active Substance: VINCRISTINE SULFATE
     Indication: Diffuse large B-cell lymphoma
     Dosage: 1.4 MG/M2 (2 MG/M2), EVERY 3 WEEKS
     Route: 042
     Dates: start: 20201124, end: 20201124
  15. VINCRISTINE SULFATE [Suspect]
     Active Substance: VINCRISTINE SULFATE
     Dosage: 1.4 MG/M2 (2 MG/M2), EVERY 3 WEEKS
     Route: 042
     Dates: start: 20201124, end: 20201124
  16. VINCRISTINE SULFATE [Suspect]
     Active Substance: VINCRISTINE SULFATE
     Dosage: 1.4 MG/M2 (2 MG/M2), EVERY 3 WEEKS
     Route: 042
     Dates: start: 20201124, end: 20201124
  17. VINCRISTINE SULFATE [Suspect]
     Active Substance: VINCRISTINE SULFATE
     Dosage: 1.4 MG/M2 (2 MG/M2), EVERY 3 WEEKS
     Route: 042
     Dates: start: 20201215, end: 20201215
  18. VINCRISTINE SULFATE [Suspect]
     Active Substance: VINCRISTINE SULFATE
     Dosage: 2 MG/M2
     Route: 042
     Dates: start: 20210105, end: 20210105
  19. VINCRISTINE SULFATE [Suspect]
     Active Substance: VINCRISTINE SULFATE
     Dosage: 2 MG/M2
     Route: 042
     Dates: start: 20210126, end: 20210126
  20. VINCRISTINE SULFATE [Suspect]
     Active Substance: VINCRISTINE SULFATE
     Dosage: 1.4 MG/M2
     Route: 042
     Dates: start: 20210216
  21. VINCRISTINE SULFATE [Suspect]
     Active Substance: VINCRISTINE SULFATE
     Dosage: 2 MG/M2
     Route: 042
     Dates: start: 20210309, end: 20210309
  22. DOXORUBICIN [Suspect]
     Active Substance: DOXORUBICIN
     Indication: Diffuse large B-cell lymphoma
     Dosage: 50 MG/M2 (80 MG/M2), EVERY 3 WEEKS
     Route: 042
     Dates: start: 20201124, end: 20201124
  23. DOXORUBICIN [Suspect]
     Active Substance: DOXORUBICIN
     Dosage: 50 MG/M2 (80 MG/M2), EVERY 3 WEEKS
     Route: 042
     Dates: start: 20201124, end: 20201124
  24. DOXORUBICIN [Suspect]
     Active Substance: DOXORUBICIN
     Dosage: 50 MG/M2 (80 MG/M2), EVERY 3 WEEKS
     Route: 042
     Dates: start: 20201124, end: 20201124
  25. DOXORUBICIN [Suspect]
     Active Substance: DOXORUBICIN
     Dosage: 50 MG/M2 (80 MG/M2), EVERY 3 WEEKS
     Route: 042
     Dates: start: 20201124, end: 20201124
  26. DOXORUBICIN [Suspect]
     Active Substance: DOXORUBICIN
     Dosage: 50 MG/M2 (80 MG/M2), EVERY 3 WEEKS
     Route: 042
     Dates: start: 20201215, end: 20201215
  27. DOXORUBICIN [Suspect]
     Active Substance: DOXORUBICIN
     Dosage: 80 MG/M2
     Route: 042
     Dates: start: 20210105, end: 20210105
  28. DOXORUBICIN [Suspect]
     Active Substance: DOXORUBICIN
     Dosage: 80 MG/M2
     Route: 042
     Dates: start: 20210126, end: 20210126
  29. DOXORUBICIN [Suspect]
     Active Substance: DOXORUBICIN
     Dosage: 50 MG/M2
     Route: 042
     Dates: start: 20210216
  30. DOXORUBICIN [Suspect]
     Active Substance: DOXORUBICIN
     Dosage: 80 MG/M2
     Route: 042
     Dates: start: 20210309, end: 20210309
  31. CYCLOPHOSPHAMIDE [Suspect]
     Active Substance: CYCLOPHOSPHAMIDE
     Indication: Diffuse large B-cell lymphoma
     Dosage: 750 MG/M2 (1260 MG/M2), EVERY 3 WEEKS
     Route: 042
     Dates: start: 20201124, end: 20201124
  32. CYCLOPHOSPHAMIDE [Suspect]
     Active Substance: CYCLOPHOSPHAMIDE
     Dosage: 750 MG/M2 (1260 MG/M2), EVERY 3 WEEKS
     Route: 042
     Dates: start: 20201124, end: 20201124
  33. CYCLOPHOSPHAMIDE [Suspect]
     Active Substance: CYCLOPHOSPHAMIDE
     Dosage: 750 MG/M2 (1260 MG/M2), EVERY 3 WEEKS
     Route: 042
     Dates: start: 20201124, end: 20201124
  34. CYCLOPHOSPHAMIDE [Suspect]
     Active Substance: CYCLOPHOSPHAMIDE
     Dosage: 750 MG/M2 (1260 MG/M2), EVERY 3 WEEKS
     Route: 042
     Dates: start: 20201124, end: 20201124
  35. CYCLOPHOSPHAMIDE [Suspect]
     Active Substance: CYCLOPHOSPHAMIDE
     Dosage: 750 MG/M2 (1260 MG/M2), EVERY 3 WEEKS
     Route: 042
     Dates: start: 20201215, end: 20201215
  36. CYCLOPHOSPHAMIDE [Suspect]
     Active Substance: CYCLOPHOSPHAMIDE
     Dosage: 1260 MG/M2
     Route: 042
     Dates: start: 20210105, end: 20210105
  37. CYCLOPHOSPHAMIDE [Suspect]
     Active Substance: CYCLOPHOSPHAMIDE
     Dosage: 1260 MG/M2
     Route: 042
     Dates: start: 20210126, end: 20210126
  38. CYCLOPHOSPHAMIDE [Suspect]
     Active Substance: CYCLOPHOSPHAMIDE
     Dosage: 1260 MG/M2
     Route: 042
     Dates: start: 20210216
  39. CYCLOPHOSPHAMIDE [Suspect]
     Active Substance: CYCLOPHOSPHAMIDE
     Dosage: 1260 MG/M2
     Route: 042
     Dates: start: 20210309, end: 20210309
  40. PREDNISOLONE [Suspect]
     Active Substance: PREDNISOLONE
     Indication: Diffuse large B-cell lymphoma
     Dosage: 100 MG/M2
     Route: 048
     Dates: start: 20201124
  41. PREDNISOLONE [Suspect]
     Active Substance: PREDNISOLONE
     Dosage: 100 MG/M2
     Route: 048
     Dates: start: 20201128
  42. PREDNISOLONE [Suspect]
     Active Substance: PREDNISOLONE
     Dosage: 100 MG/M2
     Route: 048
     Dates: start: 20201215
  43. PREDNISOLONE [Suspect]
     Active Substance: PREDNISOLONE
     Dosage: 100 MG
     Route: 048
     Dates: start: 20210109
  44. PREDNISOLONE [Suspect]
     Active Substance: PREDNISOLONE
     Dosage: 100 MG/M2
     Route: 048
     Dates: start: 20210218
  45. PREDNISOLONE [Suspect]
     Active Substance: PREDNISOLONE
     Dosage: UNK
     Route: 048
     Dates: start: 20210220
  46. PREDNISOLONE [Suspect]
     Active Substance: PREDNISOLONE
     Dosage: 100 MG
     Route: 048
     Dates: start: 20210309
  47. GLOFITAMAB [Suspect]
     Active Substance: GLOFITAMAB
     Indication: Diffuse large B-cell lymphoma
     Dosage: 2.5 MG, EVERY 3 WEEKS
     Route: 042
     Dates: start: 20201222
  48. GLOFITAMAB [Suspect]
     Active Substance: GLOFITAMAB
     Dosage: 2.5 MG, EVERY 3 WEEKS
     Route: 042
     Dates: start: 20201222
  49. GLOFITAMAB [Suspect]
     Active Substance: GLOFITAMAB
     Dosage: 2.5 MG, EVERY 3 WEEKS
     Route: 042
     Dates: start: 20201222
  50. GLOFITAMAB [Suspect]
     Active Substance: GLOFITAMAB
     Dosage: 2.5 MG, EVERY 3 WEEKS
     Route: 042
     Dates: start: 20201230, end: 20201230
  51. GLOFITAMAB [Suspect]
     Active Substance: GLOFITAMAB
     Dosage: 30 MG/M2
     Route: 042
     Dates: start: 20210119, end: 20210119
  52. GLOFITAMAB [Suspect]
     Active Substance: GLOFITAMAB
     Dosage: 30 MG
     Route: 042
     Dates: start: 20210209, end: 20210209
  53. GLOFITAMAB [Suspect]
     Active Substance: GLOFITAMAB
     Dosage: 30 MG/M2
     Route: 042
     Dates: start: 20210302, end: 20210302
  54. GLOFITAMAB [Suspect]
     Active Substance: GLOFITAMAB
     Dosage: 30 MG
     Route: 042
     Dates: start: 20210323, end: 20210323
  55. VALGANCICLOVIR [Suspect]
     Active Substance: VALGANCICLOVIR
     Indication: Cytomegalovirus viraemia
     Dosage: 900 MG/M2, 2X/DAY
     Route: 065
     Dates: start: 20210426, end: 20210513
  56. BENDAMUSTINE [Suspect]
     Active Substance: BENDAMUSTINE
     Dosage: UNK
  57. DOXORUBICIN HYDROCHLORIDE [Suspect]
     Active Substance: DOXORUBICIN HYDROCHLORIDE
     Indication: Diffuse large B-cell lymphoma
     Dosage: UNK
     Dates: start: 20201124
  58. CODEINE [Concomitant]
     Active Substance: CODEINE
     Indication: Pain
     Dosage: UNK
     Route: 065
     Dates: start: 20201123
  59. CODEINE [Concomitant]
     Active Substance: CODEINE
     Dosage: 30 MG
     Dates: start: 20201224, end: 20201224
  60. OMEPRAZOLE [Concomitant]
     Active Substance: OMEPRAZOLE
     Indication: Gastrointestinal disorder prophylaxis
     Dosage: UNK
     Dates: start: 20201118
  61. CHLORPHENIRAMINE MALEATE [Concomitant]
     Active Substance: CHLORPHENIRAMINE MALEATE
     Indication: Prophylaxis
     Dosage: 10 MG
     Route: 042
     Dates: start: 20201124, end: 20201124
  62. CHLORPHENIRAMINE MALEATE [Concomitant]
     Active Substance: CHLORPHENIRAMINE MALEATE
     Indication: Rash maculo-papular
     Dosage: 10 MG
     Route: 042
     Dates: start: 20201215, end: 20201215
  63. CHLORPHENIRAMINE MALEATE [Concomitant]
     Active Substance: CHLORPHENIRAMINE MALEATE
     Dosage: UNK
     Dates: start: 20201217
  64. CHLORPHENIRAMINE MALEATE [Concomitant]
     Active Substance: CHLORPHENIRAMINE MALEATE
     Dosage: 10 MG
     Route: 042
     Dates: start: 20210126, end: 20210126
  65. CHLORPHENIRAMINE MALEATE [Concomitant]
     Active Substance: CHLORPHENIRAMINE MALEATE
     Dosage: 10 MG
     Route: 042
     Dates: start: 20210209, end: 20210209
  66. CHLORPHENIRAMINE MALEATE [Concomitant]
     Active Substance: CHLORPHENIRAMINE MALEATE
     Dosage: 10 MG
     Route: 042
     Dates: start: 20210216, end: 20210216
  67. CHLORPHENIRAMINE MALEATE [Concomitant]
     Active Substance: CHLORPHENIRAMINE MALEATE
     Dosage: 10 MG
     Route: 042
     Dates: start: 20210219, end: 20210219
  68. CHLORPHENIRAMINE MALEATE [Concomitant]
     Active Substance: CHLORPHENIRAMINE MALEATE
     Dosage: 10 MG
     Route: 042
     Dates: start: 20210302, end: 20210302
  69. CHLORPHENIRAMINE MALEATE [Concomitant]
     Active Substance: CHLORPHENIRAMINE MALEATE
     Dosage: 10 MG
     Route: 042
     Dates: start: 20210309, end: 20210309
  70. CHLORPHENIRAMINE MALEATE [Concomitant]
     Active Substance: CHLORPHENIRAMINE MALEATE
     Dosage: 10 MG
     Route: 042
     Dates: start: 20210323, end: 20210323
  71. CHLORPHENIRAMINE MALEATE [Concomitant]
     Active Substance: CHLORPHENIRAMINE MALEATE
     Dosage: 10 MG
     Route: 042
     Dates: start: 20210119, end: 20210119
  72. SENNA [Concomitant]
     Active Substance: SENNA LEAF\SENNOSIDES\SENNOSIDES A AND B
     Indication: Constipation
     Dosage: UNK
     Dates: start: 20201124
  73. ACETAMINOPHEN [Concomitant]
     Active Substance: ACETAMINOPHEN
     Indication: Prophylaxis
     Dosage: UNK
     Dates: start: 20201123
  74. ACETAMINOPHEN [Concomitant]
     Active Substance: ACETAMINOPHEN
     Dosage: 1000 MG
     Route: 048
     Dates: start: 20201124, end: 20201124
  75. ACETAMINOPHEN [Concomitant]
     Active Substance: ACETAMINOPHEN
     Dosage: 1000 MG
     Route: 048
     Dates: start: 20201215, end: 20201215
  76. ACETAMINOPHEN [Concomitant]
     Active Substance: ACETAMINOPHEN
     Dosage: 1000 MG
     Route: 048
     Dates: start: 20210119, end: 20210119
  77. ACETAMINOPHEN [Concomitant]
     Active Substance: ACETAMINOPHEN
     Dosage: 1000 MG
     Route: 048
     Dates: start: 20210126, end: 20210126
  78. ACETAMINOPHEN [Concomitant]
     Active Substance: ACETAMINOPHEN
     Dosage: 1000 MG
     Route: 048
     Dates: start: 20210209, end: 20210209
  79. ACETAMINOPHEN [Concomitant]
     Active Substance: ACETAMINOPHEN
     Dosage: 1000 MG
     Route: 048
     Dates: start: 20210216, end: 20210216
  80. ACETAMINOPHEN [Concomitant]
     Active Substance: ACETAMINOPHEN
     Dosage: 1000 MG
     Route: 048
     Dates: start: 20210302, end: 20210302
  81. ACETAMINOPHEN [Concomitant]
     Active Substance: ACETAMINOPHEN
     Dosage: 1000 MG
     Route: 048
     Dates: start: 20210309, end: 20210309
  82. ACETAMINOPHEN [Concomitant]
     Active Substance: ACETAMINOPHEN
     Dosage: 1000 MG
     Route: 048
     Dates: start: 20210323, end: 20210323
  83. FILGRASTIM [Concomitant]
     Active Substance: FILGRASTIM
     Indication: Prophylaxis
     Dosage: UNK
     Dates: start: 20201129, end: 20201206
  84. FILGRASTIM [Concomitant]
     Active Substance: FILGRASTIM
     Dosage: UNK
     Dates: start: 20201221
  85. ALLOPURINOL [Concomitant]
     Active Substance: ALLOPURINOL
     Indication: Prophylaxis
     Dosage: UNK
     Dates: start: 20201118
  86. PREDNISOLONE [Concomitant]
     Active Substance: PREDNISOLONE
     Dosage: UNK
     Route: 065
     Dates: start: 20201118, end: 20201122
  87. DEXAMETHASONE [Concomitant]
     Active Substance: DEXAMETHASONE
     Dosage: 20 MG
     Route: 042
     Dates: start: 20210119, end: 20210119
  88. DEXAMETHASONE [Concomitant]
     Active Substance: DEXAMETHASONE
     Dosage: 20 MG
     Route: 042
     Dates: start: 20210209, end: 20210209
  89. DEXAMETHASONE [Concomitant]
     Active Substance: DEXAMETHASONE
     Dosage: 20 MG
     Route: 042
     Dates: start: 20210302, end: 20210302
  90. DEXAMETHASONE [Concomitant]
     Active Substance: DEXAMETHASONE
     Dosage: 20 MG
     Route: 042
     Dates: start: 20210323, end: 20210323
  91. SENOKOT [Concomitant]
     Active Substance: SENNOSIDES
     Indication: Constipation
     Dosage: UNK

REACTIONS (3)
  - Neutropenia [Recovered/Resolved]
  - Neutropenia [Recovered/Resolved]
  - Neutropenia [Recovered/Resolved]

NARRATIVE: CASE EVENT DATE: 20201201
